FAERS Safety Report 22389295 (Version 1)
Quarter: 2023Q2

REPORT INFORMATION
  Report Type: Spontaneous
  Country: US (occurrence: US)
  Receive Date: 20230531
  Receipt Date: 20230531
  Transmission Date: 20230721
  Serious: No
  Sender: FDA-Public Use
  Company Number: US-BAXTER-2023BAX022572

PATIENT
  Sex: Male

DRUGS (2)
  1. DIANEAL FOR PERITONEAL DIALYSIS [Suspect]
     Active Substance: ANHYDROUS DEXTROSE\CALCIUM CHLORIDE\MAGNESIUM CHLORIDE\SODIUM CHLORIDE\SODIUM LACTATE
     Route: 033
  2. LASIX [Suspect]
     Active Substance: FUROSEMIDE
     Route: 065

REACTIONS (4)
  - Dysuria [Unknown]
  - Therapeutic product effect increased [Unknown]
  - Drug ineffective [Unknown]
  - Dehydration [Unknown]
